FAERS Safety Report 19686282 (Version 1)
Quarter: 2021Q3

REPORT INFORMATION
  Report Type: Spontaneous
  Country: US (occurrence: US)
  Receive Date: 20210811
  Receipt Date: 20210811
  Transmission Date: 20211014
  Serious: No
  Sender: FDA-Public Use
  Company Number: US-GILEAD-2021-0543360

PATIENT
  Age: 32 Year
  Sex: Female

DRUGS (8)
  1. VITAMIN A + D [RETINOL;VITAMIN D NOS] [Concomitant]
  2. FOLIC ACID. [Concomitant]
     Active Substance: FOLIC ACID
  3. GABAPENTIN. [Concomitant]
     Active Substance: GABAPENTIN
  4. ZYPREXA [Concomitant]
     Active Substance: OLANZAPINE
  5. NORFLEX [Concomitant]
     Active Substance: ORPHENADRINE CITRATE
  6. ATARAX [Concomitant]
     Active Substance: HYDROXYZINE HYDROCHLORIDE
  7. THIAMINE HYDROCHLORIDE. [Concomitant]
     Active Substance: THIAMINE HYDROCHLORIDE
  8. SOFOSBUVIR;VELPATASVIR [Suspect]
     Active Substance: SOFOSBUVIR\VELPATASVIR
     Indication: CHRONIC HEPATITIS C
     Dosage: 1 DOSAGE FORM, QD
     Route: 048
     Dates: start: 20210617

REACTIONS (3)
  - Weight increased [Unknown]
  - Musculoskeletal stiffness [Unknown]
  - Neck pain [Unknown]
